FAERS Safety Report 5817559-X (Version None)
Quarter: 2008Q3

REPORT INFORMATION
  Report Type: 
  Country: None (occurrence: None)
  Receive Date: 20080722
  Receipt Date: 20080716
  Transmission Date: 20090109
  Serious: Yes (Death)
  Sender: FDA-Public Use
  Company Number: US-JNJFOC-20080704419

PATIENT

DRUGS (2)
  1. MONISTAT 7 [Suspect]
  2. MONISTAT 7 [Suspect]
     Indication: DRUG EXPOSURE DURING PREGNANCY

REACTIONS (2)
  - INTRA-UTERINE DEATH [None]
  - PREMATURE BABY [None]
